FAERS Safety Report 9243067 (Version 2)
Quarter: 2013Q2

REPORT INFORMATION
  Report Type: Spontaneous
  Country: US (occurrence: US)
  Receive Date: 20130419
  Receipt Date: 20130419
  Transmission Date: 20140414
  Serious: Yes (Other)
  Sender: FDA-Public Use
  Company Number: US-US-EMD SERONO, INC.-7018069

PATIENT
  Age: 44 Year
  Sex: Female

DRUGS (2)
  1. REBIF [Suspect]
     Indication: MULTIPLE SCLEROSIS
     Route: 058
     Dates: start: 20080314, end: 201007
  2. WELLBUTRIN /00700501/ [Suspect]
     Indication: DEPRESSION
     Dates: end: 20100802

REACTIONS (3)
  - Grand mal convulsion [Recovered/Resolved]
  - Multiple sclerosis [Unknown]
  - Injection site bruising [Unknown]
